FAERS Safety Report 7366205-5 (Version None)
Quarter: 2011Q1

REPORT INFORMATION
  Report Type: 
  Country: None (occurrence: None)
  Receive Date: 20110322
  Receipt Date: 20110308
  Transmission Date: 20110831
  Serious: Yes (Hospitalization, Other)
  Sender: FDA-Public Use
  Company Number: US-JNJFOC-20091103207

PATIENT
  Sex: Female
  Weight: 26 kg

DRUGS (6)
  1. REMICADE [Suspect]
     Indication: INFLAMMATORY BOWEL DISEASE
     Route: 042
     Dates: start: 20031230, end: 20060914
  2. REMICADE [Suspect]
     Route: 042
     Dates: start: 20031230, end: 20060914
  3. REMICADE [Suspect]
     Route: 042
     Dates: start: 20031230, end: 20060914
  4. CELEXA [Concomitant]
  5. PREVACID [Concomitant]
  6. DIFLUCAN [Concomitant]

REACTIONS (1)
  - RASH [None]
